FAERS Safety Report 8837893 (Version 1)
Quarter: 2012Q4

REPORT INFORMATION
  Report Type: 
  Country: US (occurrence: US)
  Receive Date: 20121012
  Receipt Date: 20121012
  Transmission Date: 20130627
  Serious: Yes (Other)
  Sender: FDA-Public Use
  Company Number: US-ROCHE-1132954

PATIENT
  Sex: Male

DRUGS (12)
  1. RITUXAN [Suspect]
     Indication: CHRONIC LYMPHOCYTIC LEUKAEMIA
     Route: 065
     Dates: start: 20000929
  2. RITUXAN [Suspect]
     Route: 065
     Dates: start: 20001009
  3. BENADRYL [Concomitant]
     Route: 048
     Dates: start: 20001002
  4. BENADRYL [Concomitant]
     Route: 065
     Dates: start: 20001009
  5. TYLENOL [Concomitant]
     Route: 048
     Dates: start: 20001002
  6. TYLENOL [Concomitant]
     Route: 065
     Dates: start: 20001009
  7. CIMETIDINE [Concomitant]
     Route: 065
     Dates: start: 20001002
  8. CIMETIDINE [Concomitant]
     Route: 065
     Dates: start: 20001009
  9. SOLU-MEDROL [Concomitant]
     Route: 065
  10. PREDNISONE [Concomitant]
     Route: 048
  11. PREDNISONE [Concomitant]
     Dosage: reduced
     Route: 065
  12. PREDNISONE [Concomitant]
     Dosage: reduced
     Route: 065

REACTIONS (3)
  - Ecchymosis [Unknown]
  - Fatigue [Recovered/Resolved]
  - Oedema peripheral [Unknown]
